FAERS Safety Report 5428851-5 (Version None)
Quarter: 2007Q3

REPORT INFORMATION
  Report Type: 
  Country: None (occurrence: None)
  Receive Date: 20070824
  Receipt Date: 20070817
  Transmission Date: 20080115
  Serious: Yes (Death)
  Sender: FDA-Public Use
  Company Number: 2007SP016787

PATIENT
  Age: 34 Year
  Sex: Female

DRUGS (2)
  1. TEMODAL [Suspect]
     Dosage: ; PO
     Route: 048
     Dates: start: 20061001, end: 20070307
  2. BICNU [Suspect]
     Dosage: ; IV
     Route: 042
     Dates: start: 20061001, end: 20070307

REACTIONS (7)
  - APLASIA [None]
  - INTERSTITIAL LUNG DISEASE [None]
  - MULTI-ORGAN FAILURE [None]
  - PSEUDOMONAL SEPSIS [None]
  - PURPURA [None]
  - SEPTIC SHOCK [None]
  - THROMBOCYTOPENIA [None]
